FAERS Safety Report 10983176 (Version 1)
Quarter: 2015Q2

REPORT INFORMATION
  Report Type: Spontaneous
  Country: US (occurrence: None)
  Receive Date: 20150402
  Receipt Date: 20150402
  Transmission Date: 20150821
  Serious: No
  Sender: FDA-Public Use
  Company Number: None

PATIENT
  Age: 12 Year
  Sex: Female
  Weight: 51.71 kg

DRUGS (1)
  1. METHYLPHENIDATE HCL EXTENDED-REL [Suspect]
     Active Substance: METHYLPHENIDATE HYDROCHLORIDE
     Indication: ATTENTION DEFICIT/HYPERACTIVITY DISORDER
     Route: 048
     Dates: start: 20130917, end: 20131017

REACTIONS (2)
  - Unevaluable event [None]
  - Drug ineffective [None]

NARRATIVE: CASE EVENT DATE: 20130917
